FAERS Safety Report 9022597 (Version 1)
Quarter: 2013Q1

REPORT INFORMATION
  Report Type: Spontaneous
  Country: US (occurrence: US)
  Receive Date: 20130118
  Receipt Date: 20130118
  Transmission Date: 20140127
  Serious: No
  Sender: FDA-Public Use
  Company Number: US-GLAXOSMITHKLINE-A0995829A

PATIENT
  Age: 42 Year
  Sex: Male

DRUGS (10)
  1. PROMACTA [Suspect]
     Indication: PRODUCT USED FOR UNKNOWN INDICATION
     Dosage: 50MG PER DAY
     Route: 048
  2. IMDUR [Concomitant]
  3. NIASPAN [Concomitant]
  4. NITROSTAT [Concomitant]
  5. PREDNISONE [Concomitant]
  6. LOPRESSOR [Concomitant]
  7. BUSPAR [Concomitant]
  8. ZOLOFT [Concomitant]
  9. ZYPREXA [Concomitant]
  10. RISPERDAL [Concomitant]

REACTIONS (1)
  - Diarrhoea [Unknown]
